FAERS Safety Report 18323623 (Version 2)
Quarter: 2021Q1

REPORT INFORMATION
  Report Type: Spontaneous
  Country: US (occurrence: US)
  Receive Date: 20200929
  Receipt Date: 20210108
  Transmission Date: 20210419
  Serious: Yes (Death, Life-Threatening, Hospitalization, Other)
  Sender: FDA-Public Use
  Company Number: US-DRREDDYS-USA/USA/20/0127306

PATIENT
  Age: 51 Year
  Sex: Male

DRUGS (4)
  1. DESMOPRESSIN [Concomitant]
     Active Substance: DESMOPRESSIN
     Indication: DIABETES INSIPIDUS
  2. TESTOSTERONE GEL [Suspect]
     Active Substance: TESTOSTERONE
     Indication: HYPOPITUITARISM
     Route: 065
  3. LEVOTHYROXINE SODIUM. [Concomitant]
     Active Substance: LEVOTHYROXINE SODIUM
     Indication: HYPOPITUITARISM
  4. CLADRIBINE. [Concomitant]
     Active Substance: CLADRIBINE
     Indication: LANGERHANS^ CELL HISTIOCYTOSIS

REACTIONS (5)
  - Electrocardiogram ST-T segment abnormal [Not Recovered/Not Resolved]
  - Pulmonary embolism [Fatal]
  - Hypotension [Not Recovered/Not Resolved]
  - Tachycardia [Unknown]
  - Hypoxia [Unknown]
